FAERS Safety Report 7876318-7 (Version None)
Quarter: 2011Q4

REPORT INFORMATION
  Report Type: 
  Country: None (occurrence: None)
  Receive Date: 20111031
  Receipt Date: 20111026
  Transmission Date: 20120403
  Serious: Yes (Hospitalization, Disabling)
  Sender: FDA-Public Use
  Company Number: US-MERCK-1106USA01813

PATIENT
  Age: 52 Year
  Sex: Female

DRUGS (8)
  1. FOSAMAX [Suspect]
     Route: 048
     Dates: start: 20010101, end: 20100101
  2. ALLERGENIC EXTRACT [Concomitant]
     Route: 065
     Dates: start: 20080701, end: 20101201
  3. CALCIUM (UNSPECIFIED) [Concomitant]
     Route: 065
     Dates: start: 19860101
  4. ACTONEL [Suspect]
     Indication: OSTEOPENIA
     Route: 065
     Dates: start: 20101201
  5. FOSAMAX [Suspect]
     Route: 048
     Dates: start: 20010101, end: 20100101
  6. FOSAMAX [Suspect]
     Indication: OSTEOPOROSIS PROPHYLAXIS
     Route: 048
     Dates: start: 20010101, end: 20100101
  7. FOSAMAX [Suspect]
     Indication: OSTEOPENIA
     Route: 048
     Dates: start: 20010101, end: 20100101
  8. ACTONEL [Suspect]
     Indication: OSTEOPOROSIS PROPHYLAXIS
     Route: 065
     Dates: start: 20101201

REACTIONS (3)
  - FEMUR FRACTURE [None]
  - DERMATITIS CONTACT [None]
  - ADVERSE EVENT [None]
